FAERS Safety Report 8482963-0 (Version None)
Quarter: 2012Q2

REPORT INFORMATION
  Report Type: 
  Country: None (occurrence: None)
  Receive Date: 20120626
  Receipt Date: 20120618
  Transmission Date: 20120825
  Serious: Yes (Hospitalization, Other)
  Sender: FDA-Public Use
  Company Number: 2012SP033327

PATIENT
  Age: 15 Year
  Sex: Female
  Weight: 52.7987 kg

DRUGS (3)
  1. TEMSIROLIMUS [Suspect]
     Indication: LYMPHOMA
     Dosage: 35 MG/M2, IV
     Route: 042
     Dates: start: 20111209, end: 20120328
  2. IRINOTECAN HYDROCHLORIDE [Suspect]
     Indication: LYMPHOMA
     Dosage: 90 MG/M2, PO
     Route: 048
     Dates: start: 20111209, end: 20120325
  3. TEMOZOLOMIDE [Suspect]
     Indication: LYMPHOMA
     Dosage: 100 MG/M2, PO
     Route: 048
     Dates: start: 20111209, end: 20120325

REACTIONS (8)
  - COUGH [None]
  - SNORING [None]
  - BLOOD PH DECREASED [None]
  - HYPERCAPNIA [None]
  - DYSPNOEA [None]
  - FORCED EXPIRATORY VOLUME DECREASED [None]
  - PCO2 INCREASED [None]
  - BLOOD BICARBONATE INCREASED [None]
